FAERS Safety Report 17629450 (Version 2)
Quarter: 2020Q2

REPORT INFORMATION
  Report Type: Spontaneous
  Country: US (occurrence: US)
  Receive Date: 20200406
  Receipt Date: 20200527
  Transmission Date: 20200713
  Serious: Yes (Other)
  Sender: FDA-Public Use
  Company Number: US-AMGEN-USASP2020054453

PATIENT
  Age: 65 Year
  Sex: Female
  Weight: 72.56 kg

DRUGS (1)
  1. PROLIA [Suspect]
     Active Substance: DENOSUMAB
     Indication: OSTEOPOROSIS POSTMENOPAUSAL
     Dosage: UNK
     Route: 065
     Dates: start: 201908

REACTIONS (3)
  - Foot operation [Unknown]
  - Tooth fracture [Recovered/Resolved]
  - Artificial crown procedure [Recovered/Resolved]

NARRATIVE: CASE EVENT DATE: 202003
